FAERS Safety Report 4651803-X (Version None)
Quarter: 2005Q2

REPORT INFORMATION
  Report Type: 
  Country: None (occurrence: None)
  Receive Date: 20050504
  Receipt Date: 20050316
  Transmission Date: 20051028
  Serious: Yes (Other)
  Sender: FDA-Public Use
  Company Number: PHEH2005US03291

PATIENT
  Age: 81 Year
  Sex: Female
  Weight: 66 kg

DRUGS (18)
  1. ZOMETA [Suspect]
     Indication: MULTIPLE MYELOMA
     Dosage: 4 MG EVERY MONTH
     Route: 042
     Dates: start: 20020124, end: 20050118
  2. LEVOTHYROXINE SODIUM [Concomitant]
     Indication: HYPOTHYROIDISM
     Dosage: 75 MEQ, QD
  3. LOTREL [Concomitant]
     Indication: HYPERTENSION
     Dosage: ^5/10^ QD
     Dates: end: 20041101
  4. COUMADIN [Concomitant]
     Indication: THROMBOSIS PROPHYLAXIS
     Dosage: 4 MG 6 DAYS/WEEK
  5. COUMADIN [Concomitant]
     Dosage: 5 MG, UNK
     Dates: start: 20040408
  6. PYRIDOXINE HCL [Concomitant]
  7. MULTI-VITAMINS [Concomitant]
  8. THALIDOMIDE [Concomitant]
     Indication: MULTIPLE MYELOMA
     Dosage: 60 MG, QD
  9. THALIDOMIDE [Concomitant]
     Dosage: 50 MG, QD
     Route: 048
     Dates: start: 20030401, end: 20050315
  10. LISINOPRIL [Concomitant]
     Indication: HYPERTENSION
     Dosage: 40 MG, QD
     Route: 048
     Dates: start: 20041101
  11. VELCADE [Concomitant]
     Indication: MULTIPLE MYELOMA
     Dosage: 2.2 MG, UNK
  12. DECADRON [Concomitant]
     Indication: MULTIPLE MYELOMA
     Dosage: 20 MG, UNK
     Dates: start: 20041222
  13. VITAMIN B6 [Concomitant]
     Dosage: 100 MG, BID
  14. TUMS [Concomitant]
     Dosage: 750 MG, BID
  15. ARANESP [Concomitant]
     Indication: ANAEMIA
     Dosage: 200 MEQ, PRN EVERY 2 WEEKS
     Route: 058
     Dates: start: 20031101
  16. MELPHALAN [Concomitant]
     Indication: MULTIPLE MYELOMA
     Dosage: 28 MG X 4 DAYS FOR 3 CYCLES
     Dates: start: 20011218, end: 20020401
  17. PREDNISONE TAB [Concomitant]
     Indication: MULTIPLE MYELOMA
     Dosage: 100 MG X 4 DAYS FOR 3 CYCLES
     Dates: start: 20011218, end: 20020401
  18. ACTONEL [Concomitant]
     Indication: OSTEOPOROSIS
     Dosage: 30 MG, QD
     Route: 048
     Dates: start: 20020904, end: 20021201

REACTIONS (18)
  - ANAEMIA [None]
  - ASEPTIC NECROSIS BONE [None]
  - BONE DISORDER [None]
  - BONE LESION [None]
  - DEEP VEIN THROMBOSIS [None]
  - EXOSTOSIS [None]
  - GINGIVAL RECESSION [None]
  - HAEMATOCRIT DECREASED [None]
  - HAEMOGLOBIN DECREASED [None]
  - MOUTH PLAQUE [None]
  - MOUTH ULCERATION [None]
  - OSTEOMYELITIS [None]
  - OSTEONECROSIS [None]
  - PERIODONTITIS [None]
  - STOMATITIS [None]
  - TOOTH DISORDER [None]
  - TRISMUS [None]
  - WOUND DEHISCENCE [None]
